FAERS Safety Report 4820994-X (Version None)
Quarter: 2005Q4

REPORT INFORMATION
  Report Type: 
  Country: None (occurrence: None)
  Receive Date: 20051104
  Receipt Date: 20051025
  Transmission Date: 20060501
  Serious: Yes (Hospitalization)
  Sender: FDA-Public Use
  Company Number: DE-SANOFI-SYNTHELABO-A04200500910

PATIENT
  Sex: Male
  Weight: 113 kg

DRUGS (1)
  1. STILNOX [Suspect]
     Indication: SLEEP DISORDER
     Route: 048
     Dates: end: 20051001

REACTIONS (4)
  - DEPRESSION [None]
  - DRUG ABUSER [None]
  - SKIN NECROSIS [None]
  - SKIN ULCER [None]
